FAERS Safety Report 7120036-X (Version None)
Quarter: 2010Q4

REPORT INFORMATION
  Report Type: 
  Country: None (occurrence: None)
  Receive Date: 20101123
  Receipt Date: 20101117
  Transmission Date: 20110411
  Serious: Yes (Death)
  Sender: FDA-Public Use
  Company Number: US-MPIJNJ-2010-05774

PATIENT

DRUGS (1)
  1. VELCADE [Suspect]
     Indication: MULTIPLE MYELOMA

REACTIONS (1)
  - DEATH [None]
